FAERS Safety Report 19995013 (Version 3)
Quarter: 2021Q4

REPORT INFORMATION
  Report Type: Report from Study
  Country: PL (occurrence: PL)
  Receive Date: 20211026
  Receipt Date: 20211102
  Transmission Date: 20220303
  Serious: Yes (Other)
  Sender: FDA-Public Use
  Company Number: PL-GLAXOSMITHKLINE-PL2021EME219863

PATIENT
  Sex: Female

DRUGS (1)
  1. NIRAPARIB [Suspect]
     Active Substance: NIRAPARIB
     Indication: Ovarian cancer
     Dosage: UNK
     Route: 048

REACTIONS (5)
  - Renal failure [Unknown]
  - Thrombocytopenia [Unknown]
  - Neutropenia [Unknown]
  - Pancreatic disorder [Unknown]
  - Carbohydrate antigen 125 increased [Unknown]
